FAERS Safety Report 5721424-6 (Version None)
Quarter: 2008Q2

REPORT INFORMATION
  Report Type: 
  Country: None (occurrence: None)
  Receive Date: 20080429
  Receipt Date: 20080422
  Transmission Date: 20081010
  Serious: Yes (Hospitalization)
  Sender: FDA-Public Use
  Company Number: US-JNJFOC-20080107540

PATIENT
  Sex: Female
  Weight: 102.51 kg

DRUGS (8)
  1. LEVAQUIN [Suspect]
     Indication: OTITIS EXTERNA
     Route: 065
  2. LISINOPRIL [Concomitant]
  3. INDAPAMILE [Concomitant]
     Route: 065
  4. NIACIN [Concomitant]
     Route: 065
  5. ZOCOR [Concomitant]
     Route: 065
  6. EFFEXOR [Concomitant]
     Route: 065
  7. SYNTHROID [Concomitant]
     Route: 065
  8. ASPIRIN [Concomitant]
     Route: 065

REACTIONS (7)
  - ABDOMINAL PAIN [None]
  - BACK PAIN [None]
  - CHEST PAIN [None]
  - FACIAL PALSY [None]
  - HEADACHE [None]
  - PAIN IN EXTREMITY [None]
  - PARAESTHESIA [None]
